FAERS Safety Report 4997197-1 (Version None)
Quarter: 2006Q2

REPORT INFORMATION
  Report Type: 
  Country: None (occurrence: None)
  Receive Date: 20060509
  Receipt Date: 20060428
  Transmission Date: 20061013
  Serious: Yes (Death, Other)
  Sender: FDA-Public Use
  Company Number: JP-BRISTOL-MYERS SQUIBB COMPANY-13359534

PATIENT
  Age: 51 Year
  Sex: Female

DRUGS (4)
  1. MAXIPIME [Suspect]
     Dates: start: 20050711, end: 20050720
  2. BAKTAR [Concomitant]
     Dates: start: 20050530, end: 20050720
  3. DIFLUCAN [Concomitant]
     Dates: start: 20050711, end: 20050720
  4. NEUTROGIN [Concomitant]
     Dates: start: 20050711, end: 20050720

REACTIONS (3)
  - ADULT T-CELL LYMPHOMA/LEUKAEMIA [None]
  - BLOOD LACTATE DEHYDROGENASE INCREASED [None]
  - HYPERCALCAEMIA [None]
